FAERS Safety Report 24416782 (Version 2)
Quarter: 2024Q4

REPORT INFORMATION
  Report Type: Spontaneous
  Country: US (occurrence: US)
  Receive Date: 20241009
  Receipt Date: 20241217
  Transmission Date: 20250115
  Serious: No
  Sender: PFIZER
  Company Number: US-PFIZER INC-202400272159

PATIENT
  Age: 78 Year
  Sex: Female

DRUGS (1)
  1. IBRANCE [Suspect]
     Active Substance: PALBOCICLIB
     Indication: Breast cancer
     Dosage: DAILY. TAKE ON DAYS 1- 21 OF A 28- DAY CYCLE. TAKE WITH OR WITHOUT FOOD.
     Route: 048

REACTIONS (1)
  - Fatigue [Unknown]
